FAERS Safety Report 4708057-5 (Version None)
Quarter: 2005Q2

REPORT INFORMATION
  Report Type: 
  Country: None (occurrence: None)
  Receive Date: 20050629
  Receipt Date: 20050314
  Transmission Date: 20051028
  Serious: No
  Sender: FDA-Public Use
  Company Number: 05P-163-0293922-00

PATIENT
  Age: 43 Year
  Sex: Female
  Weight: 53.0709 kg

DRUGS (10)
  1. HUMIRA [Suspect]
     Indication: RHEUMATOID ARTHRITIS
     Dosage: 40 MG, 1 IN 2 WK, SUBCUTANEOUS
     Route: 058
     Dates: start: 20030101, end: 20030101
  2. KINERET [Concomitant]
  3. PREDNISONE TAB [Concomitant]
  4. ULTRACET [Concomitant]
  5. TOPIRAMATE [Concomitant]
  6. RIZATRIPTAN BENZOATE [Concomitant]
  7. ESOMEPRAZOLE [Concomitant]
  8. VOLTAREN [Concomitant]
  9. METAXALONE [Concomitant]
  10. OXYCOCET [Concomitant]

REACTIONS (1)
  - SINUSITIS [None]
